FAERS Safety Report 23039462 (Version 2)
Quarter: 2023Q4

REPORT INFORMATION
  Report Type: Spontaneous
  Country: CA (occurrence: CA)
  Receive Date: 20231006
  Receipt Date: 20231010
  Transmission Date: 20240109
  Serious: Yes (Other)
  Sender: FDA-Public Use
  Company Number: CA-PFIZER INC-202300311727

PATIENT
  Age: 65 Year
  Sex: Female
  Weight: 66 kg

DRUGS (1)
  1. RUXIENCE [Suspect]
     Active Substance: RITUXIMAB-PVVR
     Indication: Rheumatoid arthritis
     Dosage: 1000 MG, DAY 1 AND DAY 15 (53ML OF INFUSION WAS INFUSED)
     Route: 042
     Dates: start: 20230926

REACTIONS (9)
  - Oropharyngeal pain [Recovered/Resolved]
  - Throat clearing [Recovered/Resolved]
  - Cough [Recovered/Resolved]
  - Chest discomfort [Recovered/Resolved]
  - Dizziness [Recovered/Resolved]
  - Nausea [Recovered/Resolved]
  - Feeling hot [Recovered/Resolved]
  - Head discomfort [Recovered/Resolved]
  - Incorrect dose administered [Unknown]

NARRATIVE: CASE EVENT DATE: 20230926
